FAERS Safety Report 19442894 (Version 1)
Quarter: 2021Q2

REPORT INFORMATION
  Report Type: Spontaneous
  Country: US (occurrence: US)
  Receive Date: 20210619
  Receipt Date: 20210619
  Transmission Date: 20210717
  Serious: No
  Sender: FDA-Public Use
  Company Number: None

PATIENT
  Age: 30 Year
  Sex: Female
  Weight: 71.1 kg

DRUGS (16)
  1. REYVOW [Suspect]
     Active Substance: LASMIDITAN
     Indication: CLUSTER HEADACHE
     Dosage: ?          QUANTITY:1 CAPSULE(S);?
     Route: 048
     Dates: start: 20210618, end: 20210619
  2. VITALITY CALCIUM COMPLEX [Concomitant]
  3. RIZATRIPTAN. [Concomitant]
     Active Substance: RIZATRIPTAN
  4. METHYL B?12 [Concomitant]
  5. OMEGA?3 ACIDS [Concomitant]
     Active Substance: OMEGA-3 FATTY ACIDS
  6. LIDOCAINE. [Concomitant]
     Active Substance: LIDOCAINE
  7. SUPER LYSINE [Concomitant]
  8. ATIVAN [Concomitant]
     Active Substance: LORAZEPAM
  9. MAGNESIUM GLYCINATE [Concomitant]
     Active Substance: MAGNESIUM GLYCINATE
  10. METHYL?FOLATE [Concomitant]
  11. BORON [Concomitant]
     Active Substance: BORON
  12. VITAMIN D3 [Concomitant]
     Active Substance: CHOLECALCIFEROL
  13. JULEBER [Concomitant]
     Active Substance: DESOGESTREL\ETHINYL ESTRADIOL
  14. SUPER K [Concomitant]
  15. LORATIDINE [Concomitant]
     Active Substance: LORATADINE
  16. SOLGAR [Concomitant]

REACTIONS (16)
  - Confusional state [None]
  - Muscle twitching [None]
  - Hypoaesthesia [None]
  - Mental impairment [None]
  - Dyskinesia [None]
  - Fear [None]
  - Gait disturbance [None]
  - Hyperhidrosis [None]
  - Mania [None]
  - Feeling abnormal [None]
  - Serotonin syndrome [None]
  - Panic attack [None]
  - Drug ineffective [None]
  - Crying [None]
  - Restless legs syndrome [None]
  - Paraesthesia [None]

NARRATIVE: CASE EVENT DATE: 20210619
